FAERS Safety Report 12380463 (Version 1)
Quarter: 2016Q2

REPORT INFORMATION
  Report Type: Spontaneous
  Country: US (occurrence: None)
  Receive Date: 20160517
  Receipt Date: 20160517
  Transmission Date: 20160815
  Serious: No
  Sender: FDA-Public Use
  Company Number: None

PATIENT
  Sex: Female

DRUGS (2)
  1. METFORMIN [Suspect]
     Active Substance: METFORMIN HYDROCHLORIDE
  2. TOUJEO [Suspect]
     Active Substance: INSULIN GLARGINE

REACTIONS (6)
  - Exercise tolerance decreased [None]
  - Dizziness [None]
  - Blood glucose increased [None]
  - Jaw fracture [None]
  - Asthenia [None]
  - Vertigo [None]
